FAERS Safety Report 5858276-X (Version None)
Quarter: 2008Q3

REPORT INFORMATION
  Report Type: 
  Country: None (occurrence: None)
  Receive Date: 20080826
  Receipt Date: 20080818
  Transmission Date: 20090109
  Serious: Yes (Life-Threatening, Other)
  Sender: FDA-Public Use
  Company Number: GB-WYE-G01931308

PATIENT
  Sex: Female
  Weight: 78 kg

DRUGS (6)
  1. PREMIQUE [Suspect]
     Dosage: 0.625 MG AND 5 MG (FREQUENCY UNKNOWN)
     Route: 048
     Dates: start: 20040708
  2. PREMIQUE [Suspect]
     Dosage: UNKNOWN
     Route: 048
     Dates: end: 20080101
  3. ASPIRIN [Concomitant]
     Indication: HYPERTENSION
     Route: 048
     Dates: start: 19980101
  4. ATENOLOL [Concomitant]
     Indication: HYPERTENSION
     Route: 048
     Dates: start: 20020101
  5. SIMVASTATIN [Concomitant]
     Indication: CARDIOVASCULAR DISORDER
     Route: 048
     Dates: start: 20080118
  6. BENDROFLUAZIDE [Concomitant]
     Indication: HYPERTENSION
     Route: 048
     Dates: start: 20020101

REACTIONS (3)
  - BREAST CANCER [None]
  - DRUG WITHDRAWAL SYNDROME [None]
  - MUSCULOSKELETAL PAIN [None]
